FAERS Safety Report 10605837 (Version 1)
Quarter: 2014Q4

REPORT INFORMATION
  Report Type: Spontaneous
  Country: US (occurrence: US)
  Receive Date: 20141125
  Receipt Date: 20141125
  Transmission Date: 20150529
  Serious: No
  Sender: FDA-Public Use
  Company Number: US-AMGEN INC.-USASP2014090262

PATIENT
  Age: 55 Year
  Sex: Female

DRUGS (9)
  1. MORPHINE [Suspect]
     Active Substance: MORPHINE
     Indication: FATIGUE
  2. MORPHINE [Suspect]
     Active Substance: MORPHINE
     Indication: PERIPHERAL SWELLING
  3. ENBREL [Suspect]
     Active Substance: ETANERCEPT
     Indication: RHEUMATOID ARTHRITIS
     Dosage: 50 MG, QWK
     Route: 065
     Dates: start: 2009, end: 20141109
  4. MORPHINE [Suspect]
     Active Substance: MORPHINE
     Indication: ARTHRALGIA
  5. MORPHINE [Suspect]
     Active Substance: MORPHINE
     Indication: DYSPNOEA
  6. MORPHINE [Suspect]
     Active Substance: MORPHINE
     Indication: PAIN IN EXTREMITY
  7. MORPHINE [Suspect]
     Active Substance: MORPHINE
     Indication: BACK PAIN
  8. MORPHINE [Suspect]
     Active Substance: MORPHINE
     Indication: MUSCLE TIGHTNESS
     Dosage: UNK
     Route: 065
  9. MORPHINE [Suspect]
     Active Substance: MORPHINE
     Indication: JOINT SWELLING

REACTIONS (9)
  - Fatigue [Not Recovered/Not Resolved]
  - Peripheral swelling [Not Recovered/Not Resolved]
  - Drug ineffective [Recovered/Resolved]
  - Muscle tightness [Not Recovered/Not Resolved]
  - Dyspnoea [Not Recovered/Not Resolved]
  - Arthralgia [Not Recovered/Not Resolved]
  - Pain in extremity [Not Recovered/Not Resolved]
  - Back pain [Not Recovered/Not Resolved]
  - Joint swelling [Not Recovered/Not Resolved]
